FAERS Safety Report 15126774 (Version 1)
Quarter: 2018Q3

REPORT INFORMATION
  Report Type: Spontaneous
  Country: US (occurrence: US)
  Receive Date: 20180614
  Receipt Date: 20180614
  Transmission Date: 20181010
  Serious: Yes (Other)
  Sender: FDA-Public Use
  Company Number: None

PATIENT
  Age: 60 Year
  Sex: Male
  Weight: 137.7 kg

DRUGS (6)
  1. EMPAGLIFLOZIN [Suspect]
     Active Substance: EMPAGLIFLOZIN
     Indication: DIABETES MELLITUS
     Route: 048
     Dates: start: 20180531, end: 20180614
  2. AMLODIPINE [Concomitant]
     Active Substance: AMLODIPINE BESYLATE
     Dates: start: 20180316
  3. BISOPROLOL [Concomitant]
     Active Substance: BISOPROLOL
     Dates: start: 20180222
  4. HCTZ/LOSARTAN [Concomitant]
     Dates: start: 20150506
  5. GLIPIZIDE 10MG [Concomitant]
     Dates: start: 20180501
  6. METFORMIN [Concomitant]
     Active Substance: METFORMIN HYDROCHLORIDE
     Dates: start: 20160613, end: 20180614

REACTIONS (1)
  - Renal impairment [None]

NARRATIVE: CASE EVENT DATE: 20180613
